FAERS Safety Report 5424720-5 (Version None)
Quarter: 2007Q3

REPORT INFORMATION
  Report Type: 
  Country: None (occurrence: None)
  Receive Date: 20070822
  Receipt Date: 20070822
  Transmission Date: 20080115
  Serious: Yes (Hospitalization)
  Sender: FDA-Public Use
  Company Number: None

PATIENT
  Age: 67 Year
  Sex: Male

DRUGS (2)
  1. WARFARIN SODIUM [Suspect]
     Indication: ATRIAL FIBRILLATION
     Dosage: 5MG EVERY DAY PO
     Route: 048
     Dates: start: 20061207
  2. METHADONE HCL [Suspect]
     Indication: PAIN
     Dosage: 5MG QID PO
     Route: 048
     Dates: start: 20070801, end: 20070809

REACTIONS (2)
  - DRUG CLEARANCE DECREASED [None]
  - INTERNATIONAL NORMALISED RATIO INCREASED [None]
